FAERS Safety Report 10108889 (Version 2)
Quarter: 2014Q2

REPORT INFORMATION
  Report Type: Spontaneous
  Country: DE (occurrence: DE)
  Receive Date: 20140425
  Receipt Date: 20140516
  Transmission Date: 20141212
  Serious: Yes (Death, Hospitalization)
  Sender: FDA-Public Use
  Company Number: DE-ROCHE-1383570

PATIENT
  Age: 64 Year
  Sex: Female
  Weight: 84 kg

DRUGS (4)
  1. HERCEPTIN [Suspect]
     Indication: BREAST CANCER
     Dosage: LAST DOSE PRIOR TO EVENT ON 21/MAR/2014
     Route: 042
     Dates: start: 20130712, end: 20140321
  2. VERAPAMIL [Concomitant]
     Indication: HYPERTENSION
     Route: 048
  3. LATANOPROST [Concomitant]
     Route: 065
  4. BUDECORT [Concomitant]
     Indication: ASTHMA
     Route: 065

REACTIONS (1)
  - Cerebrovascular accident [Fatal]
